FAERS Safety Report 5141697-0 (Version None)
Quarter: 2006Q4

REPORT INFORMATION
  Report Type: 
  Country: None (occurrence: None)
  Receive Date: 20061026
  Receipt Date: 20061021
  Transmission Date: 20070319
  Serious: Yes (Death)
  Sender: FDA-Public Use
  Company Number: 163-21880-06101032

PATIENT
  Age: 14 Year
  Sex: Male

DRUGS (3)
  1. REVLIMID [Suspect]
     Indication: BRAIN NEOPLASM MALIGNANT
     Dosage: 60 MG, DAILY, ORAL; SEE IMAGE
     Route: 048
     Dates: start: 20060601, end: 20060801
  2. REVLIMID [Suspect]
     Indication: BRAIN NEOPLASM MALIGNANT
     Dosage: 60 MG, DAILY, ORAL; SEE IMAGE
     Route: 048
     Dates: start: 20060523, end: 20060911
  3. REVLIMID [Suspect]
     Indication: BRAIN NEOPLASM MALIGNANT
     Dosage: 60 MG, DAILY, ORAL; SEE IMAGE
     Route: 048
     Dates: start: 20060501

REACTIONS (6)
  - ALANINE AMINOTRANSFERASE INCREASED [None]
  - DISEASE PROGRESSION [None]
  - DYSPHAGIA [None]
  - LETHARGY [None]
  - LYMPHOCYTE COUNT DECREASED [None]
  - PLATELET COUNT DECREASED [None]
